FAERS Safety Report 23689424 (Version 1)
Quarter: 2024Q1

REPORT INFORMATION
  Report Type: Spontaneous
  Country: BE (occurrence: BE)
  Receive Date: 20240331
  Receipt Date: 20240331
  Transmission Date: 20240409
  Serious: Yes (Other)
  Sender: FDA-Public Use
  Company Number: BE-JNJFOC-20240362148

PATIENT
  Sex: Male

DRUGS (4)
  1. ERDAFITINIB [Suspect]
     Active Substance: ERDAFITINIB
     Indication: Transitional cell carcinoma
     Dosage: FIRST LINE TREATMENT
     Route: 065
     Dates: start: 20220908, end: 20230112
  2. ERDAFITINIB [Suspect]
     Active Substance: ERDAFITINIB
     Dosage: SECOND LINE TREATMENT
     Route: 065
     Dates: start: 20230117, end: 20230316
  3. ERDAFITINIB [Suspect]
     Active Substance: ERDAFITINIB
     Dosage: THIRD LINE TREATMENT
     Route: 065
     Dates: start: 20230322, end: 20230709
  4. ERDAFITINIB [Suspect]
     Active Substance: ERDAFITINIB
     Route: 065
     Dates: end: 20231219

REACTIONS (2)
  - Macular detachment [Unknown]
  - Maculopathy [Unknown]
